FAERS Safety Report 10144278 (Version 2)
Quarter: 2014Q2

REPORT INFORMATION
  Report Type: Spontaneous
  Country: DE (occurrence: FR)
  Receive Date: 20140430
  Receipt Date: 20140611
  Transmission Date: 20141212
  Serious: Yes (Life-Threatening, Hospitalization)
  Sender: FDA-Public Use
  Company Number: FR-FRI-1000066917

PATIENT
  Age: 91 Year
  Sex: Male
  Weight: 57 kg

DRUGS (2)
  1. MEMANTINE [Suspect]
     Indication: DEMENTIA ALZHEIMER^S TYPE
     Dosage: 5 MG
     Route: 048
     Dates: start: 20130111, end: 20130119
  2. PERMIXON [Concomitant]
     Indication: BENIGN PROSTATIC HYPERPLASIA
     Dosage: 2 DF
     Route: 048
     Dates: start: 20120515

REACTIONS (1)
  - Ischaemic stroke [Recovered/Resolved with Sequelae]
